FAERS Safety Report 8897357 (Version 1)
Quarter: 2012Q4

REPORT INFORMATION
  Report Type: 
  Country: US (occurrence: US)
  Receive Date: 20121108
  Receipt Date: 20121108
  Transmission Date: 20130627
  Serious: No
  Sender: FDA-Public Use
  Company Number: US-AMGEN-USASP2012028938

PATIENT
  Age: 71 Year
  Sex: Female

DRUGS (3)
  1. ENBREL [Suspect]
     Indication: RHEUMATOID ARTHRITIS
     Dosage: 50 mg, qwk
     Dates: start: 20100212, end: 20100601
  2. ARAVA [Concomitant]
     Dosage: 1 mg, qd
     Dates: start: 2010
  3. METHOTREXATE [Concomitant]
     Dosage: 3 mg, qwk
     Dates: start: 20120401, end: 201204

REACTIONS (2)
  - Mouth haemorrhage [Not Recovered/Not Resolved]
  - Rheumatoid arthritis [Not Recovered/Not Resolved]
